FAERS Safety Report 5375085-9 (Version None)
Quarter: 2007Q2

REPORT INFORMATION
  Report Type: 
  Country: None (occurrence: None)
  Receive Date: 20070625
  Receipt Date: 20070315
  Transmission Date: 20071010
  Serious: Yes (Hospitalization)
  Sender: FDA-Public Use
  Company Number: 07P-163-0362762-00

PATIENT
  Age: 46 Year
  Sex: Female
  Weight: 100 kg

DRUGS (4)
  1. HUMIRA [Suspect]
     Indication: RHEUMATOID ARTHRITIS
     Dosage: 40 MG, 1 IN 1 WK, SUBCUTANEOUS
     Route: 058
     Dates: start: 20061101, end: 20070101
  2. TRILEPTAL [Concomitant]
  3. NAPROXEN SODIUM [Concomitant]
  4. PHENYTOIN SODIUM [Concomitant]

REACTIONS (6)
  - ARTHRALGIA [None]
  - LUNG INFECTION [None]
  - MEDICATION ERROR [None]
  - MENINGITIS VIRAL [None]
  - PNEUMONIA [None]
  - PYREXIA [None]
